FAERS Safety Report 19750735 (Version 1)
Quarter: 2021Q3

REPORT INFORMATION
  Report Type: Report from Study
  Country: None (occurrence: US)
  Receive Date: 20210826
  Receipt Date: 20210826
  Transmission Date: 20211014
  Serious: Yes (Other)
  Sender: FDA-Public Use
  Company Number: US-ABBVIE-21K-163-4047525-00

PATIENT
  Sex: Male

DRUGS (1)
  1. HUMIRA [Suspect]
     Active Substance: ADALIMUMAB
     Indication: HIDRADENITIS
     Dosage: CF
     Route: 058

REACTIONS (6)
  - Diabetes mellitus [Unknown]
  - Hypertension [Unknown]
  - Blood cholesterol increased [Unknown]
  - Rash macular [Unknown]
  - Gout [Unknown]
  - Skin cancer [Unknown]
